FAERS Safety Report 5553342-0 (Version None)
Quarter: 2007Q4

REPORT INFORMATION
  Report Type: 
  Country: None (occurrence: None)
  Receive Date: 20071210
  Receipt Date: 20071210
  Transmission Date: 20080405
  Serious: Yes (Hospitalization)
  Sender: FDA-Public Use
  Company Number: None

PATIENT
  Age: 42 Year
  Sex: Male

DRUGS (1)
  1. MYCOPHENOLATE MOFETIL [Suspect]
     Indication: MYELOPROLIFERATIVE DISORDER
     Dosage: 1000MG BID PO
     Route: 048
     Dates: start: 20061030, end: 20070129

REACTIONS (4)
  - ANAEMIA [None]
  - NEUTROPENIA [None]
  - RASH PUSTULAR [None]
  - WHITE BLOOD CELL COUNT DECREASED [None]
